FAERS Safety Report 7010312 (Version 2)
Quarter: 2014Q1

REPORT INFORMATION
  Report Type: Spontaneous
  Country: US (occurrence: None)
  Receive Date: 20090526
  Receipt Date: 20140224
  Transmission Date: 20141002
  Serious: Yes (Hospitalization, Other)
  Sender: FDA-Public Use
  Company Number: 2009S1004014

PATIENT
  Sex: Female

DRUGS (4)
  1. FLEET PHOSPHO-SODA ORAL SALINE LAXATIVE, GINGER-LEMON FLAVOR (ORAL SOLUTION) [Suspect]
     Indication: COLONOSCOPY
     Dosage: PO
     Route: 048
     Dates: start: 20040720, end: 20040721
  2. LISINOPRIL [Concomitant]
  3. LIPITOR (ATORVASTATIN CALCIUM) [Concomitant]
  4. NASONEX (MOMETASONE FUROATE [Concomitant]

REACTIONS (9)
  - Renal failure [None]
  - Glomerulosclerosis [None]
  - Kidney fibrosis [None]
  - Renal arteriosclerosis [None]
  - Nephrocalcinosis [None]
  - Renal failure chronic [None]
  - Glomerulonephritis [None]
  - Abdominal pain upper [None]
  - Dysgeusia [None]
